FAERS Safety Report 6970087-0 (Version None)
Quarter: 2010Q3

REPORT INFORMATION
  Report Type: 
  Country: None (occurrence: None)
  Receive Date: 20100908
  Receipt Date: 20100831
  Transmission Date: 20110219
  Serious: Yes (Hospitalization, Other)
  Sender: FDA-Public Use
  Company Number: US-BRISTOL-MYERS SQUIBB COMPANY-15222706

PATIENT
  Age: 45 Year
  Sex: Female
  Weight: 68 kg

DRUGS (1)
  1. SPRYCEL [Suspect]
     Indication: ADENOID CYSTIC CARCINOMA
     Dosage: INTERRUPTED 03JUL10 (TOTAL DOSE THIS COURES: 2100 MG), RESTARTED 15JUL10. CYC=28DAYS COURSE:1
     Route: 048
     Dates: start: 20100701, end: 20100720

REACTIONS (5)
  - DECREASED APPETITE [None]
  - DEHYDRATION [None]
  - DIZZINESS [None]
  - NAUSEA [None]
  - VOMITING [None]
